FAERS Safety Report 16117410 (Version 1)
Quarter: 2019Q1

REPORT INFORMATION
  Report Type: Spontaneous
  Country: SE (occurrence: SE)
  Receive Date: 20190326
  Receipt Date: 20190326
  Transmission Date: 20190418
  Serious: Yes (Hospitalization)
  Sender: FDA-Public Use
  Company Number: SE-ACCORD-115356

PATIENT
  Age: 23 Year
  Sex: Female

DRUGS (3)
  1. SEROQUEL [Suspect]
     Active Substance: QUETIAPINE FUMARATE
     Dosage: DATE AND TIME OF LAST ADMINISTRATION: 15-NOV-2018
     Dates: start: 20181115
  2. SERTRALINE [Suspect]
     Active Substance: SERTRALINE HYDROCHLORIDE
     Dosage: DATE AND TIME OF LAST ADMINISTRATION: 15-NOV-2018
     Dates: start: 20181115
  3. ATARAX [Suspect]
     Active Substance: HYDROXYZINE HYDROCHLORIDE
     Dosage: DATE AND TIME OF LAST ADMINISTRATION: 15-NOV-2018
     Dates: start: 20181115, end: 20181115

REACTIONS (2)
  - Intentional overdose [Unknown]
  - Toxicity to various agents [Unknown]

NARRATIVE: CASE EVENT DATE: 20181115
